FAERS Safety Report 10226120 (Version 2)
Quarter: 2014Q4

REPORT INFORMATION
  Report Type: Spontaneous
  Country: US (occurrence: US)
  Receive Date: 20140609
  Receipt Date: 20141016
  Transmission Date: 20150528
  Serious: Yes (Hospitalization)
  Sender: FDA-Public Use
  Company Number: US-BAYER-2014-084719

PATIENT
  Age: 27 Year
  Sex: Female
  Weight: 72.56 kg

DRUGS (3)
  1. MOTRIN [Concomitant]
     Active Substance: IBUPROFEN
  2. PRISTIQ EXTENDED RELEASE [Concomitant]
     Active Substance: DESVENLAFAXINE SUCCINATE
     Indication: DEPRESSION
     Dosage: UNK
     Dates: start: 20130508, end: 20130531
  3. MIRENA [Suspect]
     Active Substance: LEVONORGESTREL
     Indication: CONTRACEPTION
     Dosage: 20 MCG/24HR, CONT
     Route: 015
     Dates: start: 20121018, end: 20130531

REACTIONS (8)
  - Depression [None]
  - Off label use [None]
  - Anxiety [None]
  - Uterine perforation [None]
  - Injury [None]
  - Pain [None]
  - Device dislocation [None]
  - Emotional distress [None]

NARRATIVE: CASE EVENT DATE: 201305
